FAERS Safety Report 14107893 (Version 5)
Quarter: 2019Q1

REPORT INFORMATION
  Report Type: Spontaneous
  Country: IT (occurrence: IT)
  Receive Date: 20171019
  Receipt Date: 20190315
  Transmission Date: 20190417
  Serious: Yes (Hospitalization, Other)
  Sender: FDA-Public Use
  Company Number: IT-GLAXOSMITHKLINE-IT2017159860

PATIENT
  Age: 71 Year
  Sex: Female

DRUGS (11)
  1. VIREAD [Suspect]
     Active Substance: TENOFOVIR DISOPROXIL FUMARATE
     Indication: CHRONIC HEPATITIS B
     Dosage: UNK
     Route: 065
     Dates: start: 20110804, end: 20110827
  2. ADEFOVIR DIPIVOXIL. [Suspect]
     Active Substance: ADEFOVIR DIPIVOXIL
     Indication: CHRONIC HEPATITIS B
     Dosage: UNK UNKNOWN, UNK
     Route: 065
     Dates: start: 1992
  3. ACETYLSALICYLIC ACID [Concomitant]
     Active Substance: ASPIRIN
     Indication: PRODUCT USED FOR UNKNOWN INDICATION
     Dosage: UNK
  4. POTASSIUM PHOSPHATE DIBASIC [Concomitant]
     Active Substance: POTASSIUM PHOSPHATE, DIBASIC
     Dosage: UNK
  5. SODIUM BICARBONATE. [Concomitant]
     Active Substance: SODIUM BICARBONATE
     Dosage: UNK
  6. ETRAVIRINE [Concomitant]
     Active Substance: ETRAVIRINE
     Dosage: UNK
     Dates: start: 20160308
  7. VIREAD [Suspect]
     Active Substance: TENOFOVIR DISOPROXIL FUMARATE
     Dosage: UNK
     Route: 065
     Dates: start: 20150724, end: 20160308
  8. CALCITRIOL. [Concomitant]
     Active Substance: CALCITRIOL
     Dosage: UNK
  9. ETRAVIRINE [Concomitant]
     Active Substance: ETRAVIRINE
     Dosage: UNK
     Dates: start: 20110929, end: 20150724
  10. LOSARTAN. [Concomitant]
     Active Substance: LOSARTAN
     Dosage: UNK
  11. LAMIVUDINE. [Suspect]
     Active Substance: LAMIVUDINE
     Indication: CHRONIC HEPATITIS B
     Dosage: UNK
     Route: 065

REACTIONS (6)
  - Urine phosphorus increased [Recovering/Resolving]
  - Glycosuria [Recovering/Resolving]
  - Fanconi syndrome acquired [Recovering/Resolving]
  - Hypophosphataemia [Recovering/Resolving]
  - Renal tubular dysfunction [Recovering/Resolving]
  - Hypouricaemia [Recovering/Resolving]

NARRATIVE: CASE EVENT DATE: 201109
